FAERS Safety Report 6040767-2 (Version None)
Quarter: 2009Q1

REPORT INFORMATION
  Report Type: 
  Country: None (occurrence: None)
  Receive Date: 20090116
  Receipt Date: 20080521
  Transmission Date: 20090719
  Serious: No
  Sender: FDA-Public Use
  Company Number: US-BRISTOL-MYERS SQUIBB COMPANY-14200950

PATIENT
  Sex: Female

DRUGS (2)
  1. ABILIFY [Suspect]
     Indication: MAJOR DEPRESSION
  2. WELLBUTRIN [Suspect]
     Indication: MAJOR DEPRESSION

REACTIONS (2)
  - AGITATION [None]
  - DYSPHORIA [None]
